FAERS Safety Report 9621081 (Version 3)
Quarter: 2013Q4

REPORT INFORMATION
  Report Type: Spontaneous
  Country: CA (occurrence: CA)
  Receive Date: 20131015
  Receipt Date: 20131202
  Transmission Date: 20140711
  Serious: Yes (Death, Hospitalization, Other)
  Sender: FDA-Public Use
  Company Number: CA-ASTELLAS-2013US010661

PATIENT
  Age: 58 Year
  Sex: Male

DRUGS (1)
  1. ADVAGRAF [Suspect]
     Indication: RENAL TRANSPLANT
     Dosage: UNK
     Route: 048

REACTIONS (3)
  - Cardiac disorder [Fatal]
  - Hepatic failure [Fatal]
  - Renal failure [Fatal]
